FAERS Safety Report 10009933 (Version 1)
Quarter: 2014Q1

REPORT INFORMATION
  Report Type: Spontaneous
  Country: US (occurrence: US)
  Receive Date: 20140312
  Receipt Date: 20140312
  Transmission Date: 20141002
  Serious: No
  Sender: FDA-Public Use
  Company Number: US-INCYTE CORPORATION-2013IN000658

PATIENT
  Age: 81 Year
  Sex: Male

DRUGS (5)
  1. JAKAFI [Suspect]
     Indication: MYELOFIBROSIS
     Dosage: 10 MG, BID
     Route: 048
  2. ALLOPURINOL [Concomitant]
  3. CRESTOR [Concomitant]
  4. IBUPROFEN [Concomitant]
  5. ASPIRIN [Concomitant]
     Dosage: 81 MG, UNK

REACTIONS (2)
  - Abdominal pain [Unknown]
  - Abnormal faeces [Unknown]
